FAERS Safety Report 14696095 (Version 2)
Quarter: 2018Q2

REPORT INFORMATION
  Report Type: Report from Study
  Country: US (occurrence: US)
  Receive Date: 20180329
  Receipt Date: 20180412
  Transmission Date: 20180711
  Serious: Yes (Other)
  Sender: FDA-Public Use
  Company Number: US-BIOGEN-2018BI00546231

PATIENT
  Sex: Female

DRUGS (1)
  1. ZINBRYTA [Suspect]
     Active Substance: DACLIZUMAB
     Indication: MULTIPLE SCLEROSIS
     Route: 065
     Dates: start: 20161005, end: 201802

REACTIONS (11)
  - Appetite disorder [Not Recovered/Not Resolved]
  - Central nervous system lesion [Unknown]
  - Discomfort [Not Recovered/Not Resolved]
  - Dysgeusia [Unknown]
  - Liver function test decreased [Not Recovered/Not Resolved]
  - Optic pathway injury [Not Recovered/Not Resolved]
  - Mental fatigue [Not Recovered/Not Resolved]
  - Blindness [Recovered/Resolved with Sequelae]
  - Weight decreased [Not Recovered/Not Resolved]
  - Headache [Not Recovered/Not Resolved]
  - Fatigue [Not Recovered/Not Resolved]

NARRATIVE: CASE EVENT DATE: 2016
